FAERS Safety Report 15897648 (Version 2)
Quarter: 2019Q2

REPORT INFORMATION
  Report Type: Spontaneous
  Country: PT (occurrence: PT)
  Receive Date: 20190131
  Receipt Date: 20190413
  Transmission Date: 20190711
  Serious: Yes (Hospitalization)
  Sender: FDA-Public Use
  Company Number: PHHY2019PT020202

PATIENT
  Age: 52 Year
  Sex: Male

DRUGS (2)
  1. DIURETIC [Concomitant]
     Active Substance: UNSPECIFIED INGREDIENT
     Indication: PRODUCT USED FOR UNKNOWN INDICATION
     Dosage: UNK
     Route: 065
  2. NEPARVIS [Suspect]
     Active Substance: SACUBITRIL\VALSARTAN
     Indication: OFF LABEL USE
     Dosage: 50 MG, UNK
     Route: 065

REACTIONS (6)
  - Respiratory disorder [Unknown]
  - Hypotension [Unknown]
  - Hypoperfusion [Unknown]
  - Dyspnoea [Unknown]
  - Cardiac failure [Unknown]
  - Off label use [Unknown]
